FAERS Safety Report 5078850-0 (Version None)
Quarter: 2006Q3

REPORT INFORMATION
  Report Type: 
  Country: None (occurrence: None)
  Receive Date: 20060809
  Receipt Date: 20060731
  Transmission Date: 20061208
  Serious: Yes (Other)
  Sender: FDA-Public Use
  Company Number: HQWYE922513JUL06

PATIENT
  Age: 61 Year
  Sex: Male
  Weight: 158.9 kg

DRUGS (13)
  1. TYGACIL [Suspect]
     Indication: CELLULITIS
     Dosage: 100 MG LOADING DOSE THEN 50 MG EVERY 12 HOURS, INTRAVENOUS
     Route: 042
     Dates: start: 20060626, end: 20060713
  2. TYGACIL [Suspect]
     Indication: OSTEOMYELITIS
     Dosage: 100 MG LOADING DOSE THEN 50 MG EVERY 12 HOURS, INTRAVENOUS
     Route: 042
     Dates: start: 20060626, end: 20060713
  3. ARANESP [Concomitant]
  4. ASPIRIN [Concomitant]
  5. LASIX [Concomitant]
  6. DIOVAN [Concomitant]
  7. FERROUS SULFATE TAB [Concomitant]
  8. PRILOSEC [Concomitant]
  9. LANOXIN [Concomitant]
  10. DIPHENHYDRAMINE HCL [Concomitant]
  11. SULAR [Concomitant]
  12. LOTRIMIN [Concomitant]
  13. INSULIN [Concomitant]

REACTIONS (3)
  - DRUG INEFFECTIVE [None]
  - SKIN LESION [None]
  - STAPHYLOCOCCAL INFECTION [None]
